FAERS Safety Report 7898389-4 (Version None)
Quarter: 2011Q4

REPORT INFORMATION
  Report Type: 
  Country: None (occurrence: None)
  Receive Date: 20111107
  Receipt Date: 20111027
  Transmission Date: 20120403
  Serious: Yes (Death)
  Sender: FDA-Public Use
  Company Number: US-MYLANLABS-2009S1008093

PATIENT
  Age: 54 Year
  Sex: Male

DRUGS (9)
  1. FENTANYL-100 [Suspect]
     Indication: PAIN
     Dosage: CHANGE Q3D
     Route: 062
     Dates: end: 20080503
  2. CITALOPRAM HYDROBROMIDE [Suspect]
     Route: 048
  3. METHADONE HCL [Suspect]
     Indication: PAIN
     Route: 048
  4. CYCLOBENZAPRINE [Concomitant]
     Indication: MUSCLE RELAXANT THERAPY
     Route: 048
  5. LISINOPRIL AND HYDROCHLOROTHIAZIDE [Concomitant]
     Indication: BLOOD PRESSURE
     Dosage: 10MG/12.5MG
     Route: 048
  6. TERBINAFINE HCL [Concomitant]
     Route: 048
  7. GABAPENTIN [Concomitant]
     Route: 048
  8. HYDROCODONE BITARTRATE [Suspect]
     Indication: PAIN
     Route: 048
  9. PIROXICAM [Concomitant]
     Route: 048

REACTIONS (2)
  - MULTIPLE DRUG OVERDOSE [None]
  - TOXICITY TO VARIOUS AGENTS [None]
